FAERS Safety Report 8653870 (Version 5)
Quarter: 2013Q1

REPORT INFORMATION
  Report Type: Spontaneous
  Country: JP (occurrence: JP)
  Receive Date: 20120709
  Receipt Date: 20130207
  Transmission Date: 20140127
  Serious: Yes (Other)
  Sender: FDA-Public Use
  Company Number: JP-JNJFOC-20120700779

PATIENT
  Age: 35 Year
  Sex: Male

DRUGS (4)
  1. REMICADE [Suspect]
     Indication: CROHN^S DISEASE
     Route: 042
     Dates: start: 200502
  2. REMICADE [Suspect]
     Indication: CROHN^S DISEASE
     Route: 042
     Dates: start: 200702
  3. MERCAPTOPURINE [Suspect]
     Indication: CROHN^S DISEASE
     Route: 065
     Dates: start: 200502
  4. MESALAZINE [Concomitant]
     Indication: CROHN^S DISEASE
     Route: 065
     Dates: start: 2004

REACTIONS (3)
  - Infusion related reaction [Unknown]
  - White blood cell count decreased [Unknown]
  - Drug ineffective [Recovering/Resolving]
